FAERS Safety Report 8907091 (Version 1)
Quarter: 2012Q4

REPORT INFORMATION
  Report Type: 
  Country: US (occurrence: US)
  Receive Date: 20121114
  Receipt Date: 20121114
  Transmission Date: 20130627
  Serious: No
  Sender: FDA-Public Use
  Company Number: US-TEVA-370238USA

PATIENT
  Sex: Female

DRUGS (3)
  1. PLAN B ONE-STEP [Suspect]
     Indication: POST COITAL CONTRACEPTION
     Dosage: 1.5 Milligram Daily;
     Route: 048
  2. HYDROCODONE [Concomitant]
     Indication: BACK PAIN
  3. LITHIUM [Concomitant]
     Indication: BIPOLAR DISORDER

REACTIONS (1)
  - Menstruation irregular [Not Recovered/Not Resolved]
